FAERS Safety Report 9634117 (Version 1)
Quarter: 2013Q4

REPORT INFORMATION
  Report Type: Spontaneous
  Country: US (occurrence: US)
  Receive Date: 20131021
  Receipt Date: 20131021
  Transmission Date: 20140711
  Serious: No
  Sender: FDA-Public Use
  Company Number: US-PFIZER INC-2013296196

PATIENT
  Age: 76 Year
  Sex: Female
  Weight: 65.76 kg

DRUGS (2)
  1. ADVIL PM [Suspect]
     Indication: BACK PAIN
     Dosage: 200 MG, FOUR TIMES A WEEK
     Route: 048
     Dates: start: 2011, end: 201310
  2. LISINOPRIL [Concomitant]
     Indication: HYPERTENSION
     Dosage: UNK

REACTIONS (1)
  - Alopecia [Not Recovered/Not Resolved]
